FAERS Safety Report 16080125 (Version 3)
Quarter: 2019Q2

REPORT INFORMATION
  Report Type: Spontaneous
  Country: DE (occurrence: DE)
  Receive Date: 20190315
  Receipt Date: 20190504
  Transmission Date: 20190711
  Serious: Yes (Other)
  Sender: FDA-Public Use
  Company Number: PHHY2019DE056304

PATIENT
  Age: 54 Year
  Sex: Female
  Weight: 70 kg

DRUGS (2)
  1. LEVETIRACETAM. [Concomitant]
     Active Substance: LEVETIRACETAM
     Indication: PRODUCT USED FOR UNKNOWN INDICATION
     Dosage: 500 MG, BID
     Route: 065
  2. INTERFERON BETA-1B [Suspect]
     Active Substance: INTERFERON BETA-1B
     Indication: MULTIPLE SCLEROSIS
     Dosage: 250 UG, UNK
     Route: 065

REACTIONS (6)
  - Epilepsy [Unknown]
  - Syncope [Unknown]
  - Injection site reaction [Not Recovered/Not Resolved]
  - Syncope [Recovered/Resolved]
  - Seizure [Unknown]
  - Seizure [Unknown]

NARRATIVE: CASE EVENT DATE: 201611
